FAERS Safety Report 21242852 (Version 9)
Quarter: 2023Q2

REPORT INFORMATION
  Report Type: Spontaneous
  Country: US (occurrence: US)
  Receive Date: 20220823
  Receipt Date: 20230424
  Transmission Date: 20230722
  Serious: Yes (Other)
  Sender: FDA-Public Use
  Company Number: US-PFIZER INC-PV202200048506

PATIENT
  Age: 72 Year
  Sex: Female
  Weight: 62.142 kg

DRUGS (3)
  1. IBRANCE [Suspect]
     Active Substance: PALBOCICLIB
     Indication: Breast cancer metastatic
     Dosage: 1 TABLET (75 MG) DAILY FOR 21 DAYS AND 7 DAYS OFF REPEAT EVERY 28 DAYS (MONTHLY)
     Route: 048
     Dates: start: 20220202
  2. FASLODEX [Concomitant]
     Active Substance: FULVESTRANT
     Dosage: 250/5 ML
  3. FULVESTRANT [Concomitant]
     Active Substance: FULVESTRANT
     Indication: Breast cancer
     Dosage: 500 MG, MONTHLY
     Dates: start: 202108

REACTIONS (3)
  - Leukopenia [Not Recovered/Not Resolved]
  - Stomatitis [Not Recovered/Not Resolved]
  - Alopecia [Not Recovered/Not Resolved]

NARRATIVE: CASE EVENT DATE: 20220101
